FAERS Safety Report 10665971 (Version 1)
Quarter: 2014Q4

REPORT INFORMATION
  Report Type: Spontaneous
  Country: DE (occurrence: DE)
  Receive Date: 20141219
  Receipt Date: 20141219
  Transmission Date: 20150529
  Serious: Yes (Other)
  Sender: FDA-Public Use
  Company Number: GXKR2014DE004722

PATIENT

DRUGS (4)
  1. VALPROIC ACID. [Suspect]
     Active Substance: VALPROIC ACID
     Indication: DEPRESSION
     Dosage: MATERNAL DOSE (0. - 6. GESTATIONAL WEEK): 400 [MG/D] UNKNOWN IF SINGLE DOSE
     Route: 064
  2. ATOSIL [Suspect]
     Active Substance: PROMETHAZINE HYDROCHLORIDE
     Dosage: MATERNAL DOSE (0. - 6. GESTATIONAL WEEK): ON DEMAND
     Route: 064
  3. FLUOXETINE [Suspect]
     Active Substance: FLUOXETINE\FLUOXETINE HYDROCHLORIDE
     Indication: DEPRESSION
     Dosage: MATERNAL DOSE (0.- 6. GESTATIONAL WEEK): 25 [MG/D ]
     Route: 064
  4. VALDOXAN [Suspect]
     Active Substance: AGOMELATINE
     Indication: DEPRESSION
     Dosage: MATERNAL DOSE (0. - 6. GESTATIONAL WEEK): ON DEMAND
     Route: 064

REACTIONS (4)
  - Small for dates baby [Not Recovered/Not Resolved]
  - Motor developmental delay [Not Recovered/Not Resolved]
  - Haemangioma [Not Recovered/Not Resolved]
  - Failure to thrive [Not Recovered/Not Resolved]

NARRATIVE: CASE EVENT DATE: 20130525
